FAERS Safety Report 16824015 (Version 3)
Quarter: 2020Q3

REPORT INFORMATION
  Report Type: Spontaneous
  Country: CA (occurrence: CA)
  Receive Date: 20190918
  Receipt Date: 20200722
  Transmission Date: 20201102
  Serious: Yes (Life-Threatening, Hospitalization, Other)
  Sender: FDA-Public Use
  Company Number: CA-ASCEND THERAPEUTICS US, LLC-2074618

PATIENT
  Age: 29 Year
  Sex: Male

DRUGS (6)
  1. ESTROGEL [Suspect]
     Active Substance: ESTRADIOL
     Indication: TRANSGENDER HORMONAL THERAPY
     Route: 060
  2. ESTRADIOL. [Suspect]
     Active Substance: ESTRADIOL
     Route: 060
  3. ESTRADIOL. [Suspect]
     Active Substance: ESTRADIOL
     Route: 060
  4. ESTROGEL [Suspect]
     Active Substance: ESTRADIOL
  5. CYPROTERONE ACETATE (CYPROTERONE ACETATE) UNKNOWN [Suspect]
     Active Substance: CYPROTERONE ACETATE
  6. PROPECIA [Suspect]
     Active Substance: FINASTERIDE

REACTIONS (3)
  - Ventricular extrasystoles [Unknown]
  - Arrhythmia [Unknown]
  - Off label use [None]
